FAERS Safety Report 8383239-2 (Version None)
Quarter: 2012Q2

REPORT INFORMATION
  Report Type: 
  Country: None (occurrence: None)
  Receive Date: 20120522
  Receipt Date: 20120509
  Transmission Date: 20120825
  Serious: Yes (Hospitalization, Other)
  Sender: FDA-Public Use
  Company Number: MCA-N-12-045

PATIENT
  Age: 5 Year
  Sex: Male

DRUGS (7)
  1. LEVETIRACETAM [Concomitant]
  2. VALPROIC ACID [Suspect]
     Indication: CONVULSION
  3. METHYLPHENIDATE [Concomitant]
  4. LAMOTRGINE [Concomitant]
  5. DEXAMPHETAMINE [Concomitant]
  6. ARIPIPRAZOLE [Concomitant]
  7. CLORAZEPATE DIPOTASSIUM [Concomitant]

REACTIONS (9)
  - THROMBOCYTOPENIA [None]
  - CONVULSION [None]
  - GAIT DISTURBANCE [None]
  - NERVOUS SYSTEM DISORDER [None]
  - RASH [None]
  - AGGRESSION [None]
  - ABNORMAL BEHAVIOUR [None]
  - DYSKINESIA [None]
  - MOOD ALTERED [None]
